FAERS Safety Report 5514579-X (Version None)
Quarter: 2007Q4

REPORT INFORMATION
  Report Type: 
  Country: None (occurrence: None)
  Receive Date: 20071113
  Receipt Date: 20071107
  Transmission Date: 20080405
  Serious: Yes (Congenital Anomaly)
  Sender: FDA-Public Use
  Company Number: B0492627A

PATIENT

DRUGS (8)
  1. PAXIL [Suspect]
     Indication: DRUG USE FOR UNKNOWN INDICATION
     Dosage: 40MG PER DAY
     Dates: start: 20040327, end: 20041227
  2. PAXIL [Suspect]
     Indication: DEPRESSION
     Dates: start: 20041128
  3. SERENACE [Suspect]
     Indication: DRUG USE FOR UNKNOWN INDICATION
  4. AKINETON [Suspect]
     Indication: DRUG USE FOR UNKNOWN INDICATION
  5. DEPAS [Suspect]
     Indication: DRUG USE FOR UNKNOWN INDICATION
  6. NAUZELIN [Suspect]
     Indication: DRUG USE FOR UNKNOWN INDICATION
  7. LORAZEPAM [Concomitant]
  8. LULLAN [Concomitant]

REACTIONS (6)
  - ABASIA [None]
  - DEVELOPMENTAL DELAY [None]
  - DRUG EXPOSURE DURING PREGNANCY [None]
  - LIMB MALFORMATION [None]
  - MENTAL DISORDER [None]
  - PSYCHOMOTOR SKILLS IMPAIRED [None]
